FAERS Safety Report 21606585 (Version 1)
Quarter: 2022Q4

REPORT INFORMATION
  Report Type: Spontaneous
  Country: US (occurrence: US)
  Receive Date: 20221117
  Receipt Date: 20221117
  Transmission Date: 20230113
  Serious: No
  Sender: FDA-Public Use
  Company Number: US-CIPLA LTD.-2022US05026

PATIENT
  Age: 88 Year
  Sex: Female

DRUGS (5)
  1. DIFLUPREDNATE [Suspect]
     Active Substance: DIFLUPREDNATE
     Indication: Glaucoma
     Dosage: 1 DROP, TID (RIGHT EYE)
     Route: 047
     Dates: start: 2022
  2. DIFLUPREDNATE [Suspect]
     Active Substance: DIFLUPREDNATE
     Dosage: 1 DROP, BID (RIGHT EYE)
     Route: 047
     Dates: start: 2022
  3. ALPHAGAN P [Concomitant]
     Active Substance: BRIMONIDINE TARTRATE
     Indication: Glaucoma
     Dosage: UNK, BID (LEFT EYE)
     Route: 065
  4. PREDNISOLONE [Concomitant]
     Active Substance: PREDNISOLONE
     Indication: Glaucoma
     Dosage: UNK
     Route: 065
  5. LOTEPREDNOL [Concomitant]
     Active Substance: LOTEPREDNOL
     Indication: Glaucoma
     Dosage: UNK, QD
     Route: 065

REACTIONS (1)
  - Lacrimation increased [Not Recovered/Not Resolved]

NARRATIVE: CASE EVENT DATE: 20220101
